FAERS Safety Report 11597886 (Version 1)
Quarter: 2015Q4

REPORT INFORMATION
  Report Type: Spontaneous
  Country: US (occurrence: US)
  Receive Date: 20151006
  Receipt Date: 20151006
  Transmission Date: 20160304
  Serious: No
  Sender: FDA-Public Use
  Company Number: US-JNJFOC-20150720890

PATIENT
  Age: 65 Year
  Sex: Female

DRUGS (5)
  1. AFFINITAK [Concomitant]
     Indication: NEOPLASM MALIGNANT
     Route: 065
     Dates: start: 20150608
  2. LEVAQUIN [Suspect]
     Active Substance: LEVOFLOXACIN
     Indication: PRODUCT USED FOR UNKNOWN INDICATION
     Route: 048
     Dates: start: 20150114
  3. KEPPRA [Concomitant]
     Active Substance: LEVETIRACETAM
     Indication: SEIZURE
     Route: 065
     Dates: start: 19960528, end: 20150608
  4. LISINOPRIL. [Concomitant]
     Active Substance: LISINOPRIL
     Indication: BLOOD PRESSURE MEASUREMENT
     Dosage: STARTED ON 28-MAY AND STOPPED AFTER 9 YEARS
     Route: 065
  5. PREDNISONE. [Concomitant]
     Active Substance: PREDNISONE
     Indication: RASH
     Route: 065
     Dates: start: 19960528, end: 20150608

REACTIONS (4)
  - Dysphagia [Recovered/Resolved]
  - Local swelling [Recovered/Resolved]
  - Drug hypersensitivity [Unknown]
  - Swelling face [Recovered/Resolved]

NARRATIVE: CASE EVENT DATE: 20150714
